FAERS Safety Report 6628377-7 (Version None)
Quarter: 2010Q1

REPORT INFORMATION
  Report Type: 
  Country: None (occurrence: None)
  Receive Date: 20100311
  Receipt Date: 20100225
  Transmission Date: 20100710
  Serious: Yes (Life-Threatening)
  Sender: FDA-Public Use
  Company Number: CN-ROCHE-687988

PATIENT
  Sex: Male
  Weight: 60 kg

DRUGS (2)
  1. CAPECITABINE [Suspect]
     Indication: GASTRIC CANCER
     Dosage: FORM: PELLET.  LAST DOSE PRIOR TO SAE: 21 FEBRUARY 2010. FREQUENCY: QD.
     Route: 048
     Dates: start: 20100210, end: 20100221
  2. PACLITAXEL [Suspect]
     Indication: GASTRIC CANCER
     Dosage: LAST DOSE PRIOR TO SAE: 17 FEBRUARY 2010.
     Route: 042
     Dates: start: 20100210

REACTIONS (1)
  - MULTI-ORGAN FAILURE [None]
